FAERS Safety Report 12921548 (Version 1)
Quarter: 2016Q4

REPORT INFORMATION
  Report Type: Spontaneous
  Country: US (occurrence: US)
  Receive Date: 20161108
  Receipt Date: 20161108
  Transmission Date: 20170207
  Serious: No
  Sender: FDA-Public Use
  Company Number: US-CREALTA PHARMACEUTICALS-2015S1000066

PATIENT
  Sex: Male

DRUGS (4)
  1. KRYSTEXXA [Suspect]
     Active Substance: PEGLOTICASE
     Route: 042
     Dates: start: 20151204, end: 20151204
  2. KRYSTEXXA [Suspect]
     Active Substance: PEGLOTICASE
     Indication: GOUTY TOPHUS
     Route: 042
     Dates: start: 20151119, end: 20151119
  3. KRYSTEXXA [Suspect]
     Active Substance: PEGLOTICASE
     Indication: BLOOD URIC ACID INCREASED
     Route: 042
     Dates: start: 20151026, end: 20151026
  4. PREDNISONE. [Concomitant]
     Active Substance: PREDNISONE
     Indication: PRODUCT USED FOR UNKNOWN INDICATION
     Route: 048

REACTIONS (2)
  - Therapeutic response decreased [Unknown]
  - Drug dose omission [None]

NARRATIVE: CASE EVENT DATE: 2015
